FAERS Safety Report 6566958-X (Version None)
Quarter: 2010Q1

REPORT INFORMATION
  Report Type: 
  Country: None (occurrence: None)
  Receive Date: 20100202
  Receipt Date: 20100121
  Transmission Date: 20100710
  Serious: Yes (Hospitalization)
  Sender: FDA-Public Use
  Company Number: US-SANOFI-AVENTIS-2010SA004131

PATIENT
  Age: 71 Year
  Sex: Female
  Weight: 68.3 kg

DRUGS (5)
  1. OXALIPLATIN [Suspect]
     Route: 041
     Dates: start: 20100112, end: 20100112
  2. OXALIPLATIN [Suspect]
     Route: 041
     Dates: start: 20090825, end: 20090825
  3. LEUCOVORIN CALCIUM [Suspect]
     Route: 042
     Dates: start: 20090825, end: 20100112
  4. FLUOROURACIL [Suspect]
     Route: 042
     Dates: start: 20100112
  5. FLUOROURACIL [Suspect]
     Route: 042
     Dates: start: 20090825, end: 20090828

REACTIONS (1)
  - ATRIAL FIBRILLATION [None]
